FAERS Safety Report 13621846 (Version 1)
Quarter: 2017Q2

REPORT INFORMATION
  Report Type: Spontaneous
  Country: US (occurrence: US)
  Receive Date: 20170607
  Receipt Date: 20170607
  Transmission Date: 20170830
  Serious: No
  Sender: FDA-Public Use
  Company Number: US-ROCHE-1883714

PATIENT
  Sex: Male

DRUGS (9)
  1. CARVEDILOL. [Concomitant]
     Active Substance: CARVEDILOL
     Route: 065
  2. AMARYL [Concomitant]
     Active Substance: GLIMEPIRIDE
  3. HYTRIN [Concomitant]
     Active Substance: TERAZOSIN HYDROCHLORIDE
  4. LIPITOR [Concomitant]
     Active Substance: ATORVASTATIN CALCIUM
  5. COMPAZINE [Concomitant]
     Active Substance: PROCHLORPERAZINE MALEATE
  6. COZAAR [Concomitant]
     Active Substance: LOSARTAN POTASSIUM
  7. XELODA [Suspect]
     Active Substance: CAPECITABINE
     Indication: PANCREATIC CARCINOMA
     Route: 048
     Dates: start: 20150914
  8. LEVEMIR [Concomitant]
     Active Substance: INSULIN DETEMIR
  9. PROSCAR [Concomitant]
     Active Substance: FINASTERIDE

REACTIONS (1)
  - Rash [Unknown]
